FAERS Safety Report 5725839-1 (Version None)
Quarter: 2008Q2

REPORT INFORMATION
  Report Type: 
  Country: None (occurrence: None)
  Receive Date: 20080429
  Receipt Date: 20080410
  Transmission Date: 20081010
  Serious: No
  Sender: FDA-Public Use
  Company Number: 002#2#2008-00267

PATIENT
  Sex: Male
  Weight: 95.2554 kg

DRUGS (5)
  1. NEUPRO [Suspect]
     Indication: PARKINSON'S DISEASE
     Dosage: 2MG/24H,1 IN 1 D,TRANSDERMAL
     Route: 062
     Dates: start: 20080327
  2. CARBIDOPA + LEVODOPA [Concomitant]
  3. COMTAN [Concomitant]
  4. NIFEDIPINE [Concomitant]
  5. ASPIRIN [Concomitant]

REACTIONS (4)
  - DRUG EFFECT DECREASED [None]
  - GAIT DISTURBANCE [None]
  - MENTAL DISORDER [None]
  - THINKING ABNORMAL [None]
